FAERS Safety Report 7832669-3 (Version None)
Quarter: 2011Q4

REPORT INFORMATION
  Report Type: 
  Country: None (occurrence: None)
  Receive Date: 20111024
  Receipt Date: 20111012
  Transmission Date: 20120403
  Serious: No
  Sender: FDA-Public Use
  Company Number: US-BIOGENIDEC-2011BI039047

PATIENT
  Age: 32 Year
  Sex: Male

DRUGS (2)
  1. TYSABRI [Suspect]
     Route: 042
     Dates: start: 20061006, end: 20081204
  2. TYSABRI [Suspect]
     Indication: MULTIPLE SCLEROSIS
     Route: 042
     Dates: start: 20111010

REACTIONS (6)
  - VISION BLURRED [None]
  - TONGUE PARALYSIS [None]
  - BALANCE DISORDER [None]
  - HEADACHE [None]
  - FATIGUE [None]
  - DYSPNOEA [None]
